FAERS Safety Report 21672656 (Version 1)
Quarter: 2022Q4

REPORT INFORMATION
  Report Type: Spontaneous
  Country: US (occurrence: US)
  Receive Date: 20221202
  Receipt Date: 20221202
  Transmission Date: 20230113
  Serious: No
  Sender: FDA-Public Use
  Company Number: US-ELI_LILLY_AND_COMPANY-US202212000785

PATIENT
  Sex: Female

DRUGS (13)
  1. BASAGLAR [Suspect]
     Active Substance: INSULIN GLARGINE
     Indication: Product used for unknown indication
     Dosage: 35 U, UNKNOWN
     Route: 065
  2. BASAGLAR [Suspect]
     Active Substance: INSULIN GLARGINE
     Indication: Product used for unknown indication
     Dosage: 35 U, UNKNOWN
     Route: 065
  3. BASAGLAR [Suspect]
     Active Substance: INSULIN GLARGINE
     Indication: Product used for unknown indication
     Dosage: 35 U, UNKNOWN
     Route: 065
  4. BASAGLAR [Suspect]
     Active Substance: INSULIN GLARGINE
     Indication: Product used for unknown indication
     Dosage: 35 U, UNKNOWN
     Route: 065
  5. BASAGLAR [Suspect]
     Active Substance: INSULIN GLARGINE
     Indication: Product used for unknown indication
     Dosage: 35 U, UNKNOWN
     Route: 065
  6. BASAGLAR [Suspect]
     Active Substance: INSULIN GLARGINE
     Dosage: 35 U, UNKNOWN
     Route: 065
  7. BASAGLAR [Suspect]
     Active Substance: INSULIN GLARGINE
     Dosage: 35 U, UNKNOWN
     Route: 065
  8. BASAGLAR [Suspect]
     Active Substance: INSULIN GLARGINE
     Dosage: 35 U, UNKNOWN
     Route: 065
  9. BASAGLAR [Suspect]
     Active Substance: INSULIN GLARGINE
     Dosage: 35 U, UNKNOWN
     Route: 065
  10. BASAGLAR [Suspect]
     Active Substance: INSULIN GLARGINE
     Dosage: 35 U, UNKNOWN
     Route: 065
  11. BASAGLAR [Suspect]
     Active Substance: INSULIN GLARGINE
     Dosage: 35 U, UNKNOWN
     Route: 065
  12. BASAGLAR [Suspect]
     Active Substance: INSULIN GLARGINE
     Dosage: 35 U, UNKNOWN
     Route: 065
  13. BASAGLAR [Suspect]
     Active Substance: INSULIN GLARGINE
     Dosage: 35 U, UNKNOWN
     Route: 065

REACTIONS (1)
  - Incorrect dose administered [Unknown]
